FAERS Safety Report 17131068 (Version 2)
Quarter: 2021Q1

REPORT INFORMATION
  Report Type: Spontaneous
  Country: US (occurrence: US)
  Receive Date: 20191209
  Receipt Date: 20210104
  Transmission Date: 20210419
  Serious: Yes (Other)
  Sender: FDA-Public Use
  Company Number: US-PFIZER INC-2019532513

PATIENT
  Age: 47 Year
  Sex: Female

DRUGS (1)
  1. XELJANZ [Suspect]
     Active Substance: TOFACITINIB CITRATE
     Indication: AUTOIMMUNE DISORDER
     Dosage: 5 MG, UNK

REACTIONS (2)
  - Transient ischaemic attack [Unknown]
  - Off label use [Unknown]
